FAERS Safety Report 6998478-2 (Version None)
Quarter: 2010Q3

REPORT INFORMATION
  Report Type: 
  Country: None (occurrence: None)
  Receive Date: 20100920
  Receipt Date: 20090915
  Transmission Date: 20110219
  Serious: No
  Sender: FDA-Public Use
  Company Number: US-ASTRAZENECA-2009UW21603

PATIENT
  Age: 41 Year
  Sex: Male
  Weight: 74.8 kg

DRUGS (9)
  1. SEROQUEL [Suspect]
     Indication: DEPRESSION
     Route: 048
     Dates: start: 19930101
  2. SEROQUEL [Suspect]
     Indication: ANXIETY
     Route: 048
     Dates: start: 19930101
  3. SEROQUEL [Suspect]
     Indication: INSOMNIA
     Route: 048
     Dates: start: 19930101
  4. ZYPREXA [Concomitant]
     Indication: DEPRESSION
     Dates: start: 20050101
  5. ZYPREXA [Concomitant]
     Indication: ANXIETY
     Dates: start: 20050101
  6. ZYPREXA [Concomitant]
     Indication: INSOMNIA
     Dates: start: 20050101
  7. CLOZARIL [Concomitant]
  8. HALDOL [Concomitant]
  9. XANAX [Concomitant]

REACTIONS (5)
  - BLOOD CHOLESTEROL INCREASED [None]
  - HYPERLIPIDAEMIA [None]
  - OBESITY [None]
  - ROAD TRAFFIC ACCIDENT [None]
  - TYPE 2 DIABETES MELLITUS [None]
